FAERS Safety Report 5482507-1 (Version None)
Quarter: 2007Q4

REPORT INFORMATION
  Report Type: 
  Country: None (occurrence: None)
  Receive Date: 20071011
  Receipt Date: 20070817
  Transmission Date: 20080405
  Serious: No
  Sender: FDA-Public Use
  Company Number: A0653708A

PATIENT
  Age: 49 Year
  Sex: Female
  Weight: 134.5 kg

DRUGS (7)
  1. TYKERB [Suspect]
     Indication: BREAST CANCER
     Dosage: 1250MG PER DAY
     Route: 048
     Dates: start: 20070430
  2. XELODA [Suspect]
     Indication: BREAST CANCER
     Dosage: 3TAB TWICE PER DAY
     Dates: start: 20070430, end: 20070523
  3. COUMADIN [Concomitant]
  4. SYNTHROID [Concomitant]
  5. EFFEXOR [Concomitant]
  6. DURAGESIC-100 [Concomitant]
  7. OXYCODONE HCL [Concomitant]

REACTIONS (4)
  - CHEILITIS [None]
  - DIARRHOEA [None]
  - NAUSEA [None]
  - SKIN CHAPPED [None]
